FAERS Safety Report 5737368-X (Version None)
Quarter: 2008Q2

REPORT INFORMATION
  Report Type: 
  Country: None (occurrence: None)
  Receive Date: 20080514
  Receipt Date: 20080505
  Transmission Date: 20081010
  Serious: Yes (Life-Threatening, Hospitalization)
  Sender: FDA-Public Use
  Company Number: US-WYE-H03941208

PATIENT
  Age: 76 Year
  Sex: Female

DRUGS (6)
  1. TYGACIL [Suspect]
     Indication: LUNG INFECTION
     Dosage: ^20 DAYS^
     Route: 042
  2. TYGACIL [Suspect]
     Indication: ACINETOBACTER INFECTION
  3. TYGACIL [Suspect]
     Indication: PSEUDOMONAS INFECTION
  4. MAXIPIME [Concomitant]
     Dosage: UNKNOWN
  5. VANCOMYCIN [Concomitant]
     Dosage: UNKNOWN
  6. COLISTIN SULFATE [Concomitant]
     Dosage: UNKNOWN

REACTIONS (1)
  - STAPHYLOCOCCAL INFECTION [None]
